FAERS Safety Report 9860141 (Version 3)
Quarter: 2014Q2

REPORT INFORMATION
  Report Type: Report from Study
  Country: CA (occurrence: CA)
  Receive Date: 20140201
  Receipt Date: 20140519
  Transmission Date: 20141212
  Serious: Yes (Other)
  Sender: FDA-Public Use
  Company Number: CA-ROCHE-1335573

PATIENT
  Sex: Female
  Weight: 90.7 kg

DRUGS (10)
  1. RITUXAN [Suspect]
     Indication: RHEUMATOID ARTHRITIS
     Dosage: PREVIOUS DOSE 22/JAN/2014
     Route: 042
     Dates: start: 20140108
  2. OMEPRAZOLE [Concomitant]
     Route: 065
  3. ACETAMINOPHEN [Concomitant]
     Route: 048
     Dates: start: 20140108
  4. DIPHENHYDRAMINE HYDROCHLORIDE [Concomitant]
     Route: 048
     Dates: start: 20140108
  5. METHYLPREDNISOLONE [Concomitant]
     Route: 042
     Dates: start: 20140108
  6. CANDESARTAN [Concomitant]
  7. PREDNISONE [Concomitant]
     Dosage: 6 PILLS - WEANING AS OF JAN 2ND 2014 - 2X 5MG PILLS
     Route: 065
  8. IBUPROFEN [Concomitant]
     Dosage: 3X DAILY PRN (ONLY TAKES 2 DAILY)
     Route: 065
  9. OMEGA 3 [Concomitant]
  10. HYDROCHLOROTHIAZIDE [Concomitant]

REACTIONS (3)
  - Arthropathy [Unknown]
  - Pain [Not Recovered/Not Resolved]
  - Synovial rupture [Unknown]
